FAERS Safety Report 9398057 (Version 1)
Quarter: 2013Q3

REPORT INFORMATION
  Report Type: Spontaneous
  Country: US (occurrence: US)
  Receive Date: 20130712
  Receipt Date: 20130712
  Transmission Date: 20140515
  Serious: No
  Sender: FDA-Public Use
  Company Number: US-GLAXOSMITHKLINE-A0866086A

PATIENT
  Age: 62 Year
  Sex: Female

DRUGS (9)
  1. FLOVENT [Suspect]
     Indication: CHRONIC OBSTRUCTIVE PULMONARY DISEASE
     Dosage: 2PUFF TWICE PER DAY
     Route: 055
     Dates: start: 2005
  2. DUONEB [Concomitant]
  3. UNKNOWN MEDICATION [Concomitant]
  4. DICYCLOMINE [Concomitant]
  5. LORAZEPAM [Concomitant]
  6. PROTONIX [Concomitant]
  7. ALBUTEROL NEBULIZER [Concomitant]
  8. PREDNISONE [Concomitant]
  9. VENTOLIN [Concomitant]

REACTIONS (4)
  - Dyspnoea [Unknown]
  - Chronic obstructive pulmonary disease [Unknown]
  - Increased viscosity of bronchial secretion [Unknown]
  - Product quality issue [Unknown]
